FAERS Safety Report 19221651 (Version 1)
Quarter: 2021Q2

REPORT INFORMATION
  Report Type: Report from Study
  Country: US (occurrence: US)
  Receive Date: 20210505
  Receipt Date: 20210505
  Transmission Date: 20210717
  Serious: No
  Sender: FDA-Public Use
  Company Number: US-INCYTE CORPORATION-2021IN002692

PATIENT

DRUGS (1)
  1. JAKAFI [Suspect]
     Active Substance: RUXOLITINIB
     Indication: MYELOFIBROSIS
     Route: 065

REACTIONS (17)
  - Mobility decreased [Unknown]
  - Headache [Unknown]
  - Insomnia [Unknown]
  - Gastrointestinal disorder [Unknown]
  - Libido decreased [Unknown]
  - Fatigue [Unknown]
  - Hunger [Unknown]
  - Appetite disorder [Unknown]
  - Tinnitus [Unknown]
  - Panic attack [Unknown]
  - Eye contusion [Unknown]
  - Dyspnoea [Unknown]
  - Restlessness [Unknown]
  - Feeling of body temperature change [Unknown]
  - Joint swelling [Unknown]
  - Affective disorder [Unknown]
  - Hypoaesthesia [Unknown]
